FAERS Safety Report 9025540 (Version 1)
Quarter: 2013Q1

REPORT INFORMATION
  Report Type: Spontaneous
  Country: US (occurrence: US)
  Receive Date: 20130122
  Receipt Date: 20130122
  Transmission Date: 20140127
  Serious: No
  Sender: FDA-Public Use
  Company Number: US-JNJFOC-20121105157

PATIENT
  Age: 61 Year
  Sex: Male
  Weight: 68.04 kg

DRUGS (3)
  1. NUCYNTA ER [Suspect]
     Indication: BACK PAIN
     Dosage: EVERY12 HOURS
     Route: 048
     Dates: start: 20121102, end: 20121104
  2. CYMBALTA [Concomitant]
     Indication: DEPRESSION
     Dosage: TWICE DAILY
     Route: 048
     Dates: start: 2012
  3. CYMBALTA [Concomitant]
     Indication: PAIN
     Dosage: TWICE DAILY
     Route: 048
     Dates: start: 2012

REACTIONS (6)
  - Withdrawal syndrome [Recovered/Resolved]
  - Oesophageal pain [Unknown]
  - Abdominal pain upper [Unknown]
  - Vomiting [Unknown]
  - Oropharyngeal pain [Unknown]
  - Vitreous floaters [Unknown]
